FAERS Safety Report 21266930 (Version 7)
Quarter: 2022Q4

REPORT INFORMATION
  Report Type: Report from Study
  Country: DE (occurrence: DE)
  Receive Date: 20220829
  Receipt Date: 20221208
  Transmission Date: 20230113
  Serious: Yes (Death, Hospitalization)
  Sender: FDA-Public Use
  Company Number: DE-PFM-2022-06121

PATIENT
  Age: 62 Year
  Sex: Female
  Weight: 68 kg

DRUGS (16)
  1. BRAFTOVI [Suspect]
     Active Substance: ENCORAFENIB
     Indication: Colorectal cancer
     Dosage: 300 MG/DAY
     Route: 048
     Dates: start: 20220317
  2. BRAFTOVI [Suspect]
     Active Substance: ENCORAFENIB
     Dosage: 300 MG/DAY
     Route: 048
     Dates: start: 20220823, end: 20221114
  3. CETUXIMAB [Suspect]
     Active Substance: CETUXIMAB
     Indication: Colorectal cancer
     Dosage: 250 MG/M2, WEEKLY (LIQUID FORMULATION)
     Route: 042
     Dates: start: 20220317, end: 20220506
  4. CETUXIMAB [Suspect]
     Active Substance: CETUXIMAB
     Dosage: 250 MG/M2, WEEKLY (LIQUID FORMULATION)
     Route: 042
     Dates: start: 20220523
  5. CETUXIMAB [Suspect]
     Active Substance: CETUXIMAB
     Dosage: 250 MG/M2, WEEKLY (LIQUID FORMULATION)
     Route: 042
     Dates: start: 20220902, end: 20221102
  6. METOPROLOL FUMARATE [Concomitant]
     Active Substance: METOPROLOL FUMARATE
     Dosage: 23.75 MG, DAILY
     Route: 048
  7. LEVOTHYROXINE SODIUM [Concomitant]
     Active Substance: LEVOTHYROXINE SODIUM
     Indication: Thyroidectomy
     Dosage: 75 UG, DAILY
     Route: 048
     Dates: start: 2014
  8. ONDANSETRON HYDROCHLORIDE [Concomitant]
     Active Substance: ONDANSETRON HYDROCHLORIDE
     Indication: Prophylaxis
     Dosage: 8 MG PRN, ( AS NEEDED)
     Route: 048
     Dates: start: 20210315
  9. LOPERAMIDE [Concomitant]
     Active Substance: LOPERAMIDE
     Indication: Prophylaxis
     Dosage: 2 MG, PRN (AS NEEDED)
     Route: 048
     Dates: start: 20210315
  10. DEXAMETHASON 4 MG/-8 MG JENAPHARM [Concomitant]
     Indication: Prophylaxis
     Dosage: 8 MG, PRN ( AS NEEDED)
     Route: 048
     Dates: start: 20210316
  11. POTASSIUM CITRATE [Concomitant]
     Active Substance: POTASSIUM CITRATE
     Indication: Prophylaxis
     Dosage: 1 BTL DAILY
     Route: 048
     Dates: start: 20210404
  12. DOXYCYCLIN RATIOPHARM [Concomitant]
     Indication: Rash
     Dosage: 100 MG, BID (2/DAY)
     Route: 048
     Dates: start: 20210616, end: 20220308
  13. METHYLPREDNISOLONE ACEPONATE [Concomitant]
     Active Substance: METHYLPREDNISOLONE ACEPONATE
     Indication: Rash
     Dosage: 0.1 %, PRN (AS NEEDED)
     Route: 062
     Dates: start: 20210811, end: 20220308
  14. SODIUM PERCHLORATE [Concomitant]
     Active Substance: SODIUM PERCHLORATE
     Indication: Prophylaxis
     Dosage: 15 GGT PRN (AS NEEDED)
     Route: 048
     Dates: start: 20220228
  15. PANTOPRAZOLE SODIUM [Concomitant]
     Active Substance: PANTOPRAZOLE SODIUM
     Indication: Prophylaxis
     Dosage: 40 MG DAILY
     Route: 048
     Dates: start: 20220411
  16. CHOLECALCIFEROL [Concomitant]
     Active Substance: CHOLECALCIFEROL
     Indication: Prophylaxis
     Dosage: 2000 IU, WEEKLY
     Route: 042
     Dates: start: 20220412

REACTIONS (3)
  - General physical health deterioration [Fatal]
  - Liver function test increased [Recovering/Resolving]
  - COVID-19 [Recovered/Resolved]

NARRATIVE: CASE EVENT DATE: 20220506
